FAERS Safety Report 7213851-5 (Version None)
Quarter: 2011Q1

REPORT INFORMATION
  Report Type: 
  Country: None (occurrence: None)
  Receive Date: 20110106
  Receipt Date: 20101222
  Transmission Date: 20110831
  Serious: Yes (Other)
  Sender: FDA-Public Use
  Company Number: US-ELI_LILLY_AND_COMPANY-US201101000373

PATIENT
  Age: 35 Year
  Sex: Female

DRUGS (4)
  1. STRATTERA [Suspect]
     Dosage: 25 MG, UNK
  2. LAMICTAL [Concomitant]
  3. ZOLOFT [Concomitant]
  4. XANAX [Concomitant]

REACTIONS (2)
  - SUICIDAL IDEATION [None]
  - FEELING JITTERY [None]
